FAERS Safety Report 4340090-8 (Version None)
Quarter: 2004Q2

REPORT INFORMATION
  Report Type: 
  Country: None (occurrence: None)
  Receive Date: 20040415
  Receipt Date: 20040415
  Transmission Date: 20050107
  Serious: Yes (Other)
  Sender: FDA-Public Use
  Company Number: None

PATIENT
  Age: 34 Year
  Sex: Female
  Weight: 59.4212 kg

DRUGS (4)
  1. OLANZAPINE [Suspect]
     Indication: APPETITE DISORDER
     Dosage: 7,5MG DAILY ORAL
     Route: 048
     Dates: start: 20040331, end: 20040331
  2. OLANZAPINE [Suspect]
     Indication: OFF LABEL USE
     Dosage: 7,5MG DAILY ORAL
     Route: 048
     Dates: start: 20040331, end: 20040331
  3. EFFEXOR [Concomitant]
  4. DIAZEPAM [Concomitant]

REACTIONS (5)
  - HEART RATE DECREASED [None]
  - HEART RATE IRREGULAR [None]
  - LOSS OF CONSCIOUSNESS [None]
  - PULSE PRESSURE DECREASED [None]
  - SYNCOPE [None]
